FAERS Safety Report 17910831 (Version 1)
Quarter: 2020Q2

REPORT INFORMATION
  Report Type: Spontaneous
  Country: US (occurrence: US)
  Receive Date: 20200617
  Receipt Date: 20200617
  Transmission Date: 20200714
  Serious: Yes (Hospitalization)
  Sender: FDA-Public Use
  Company Number: None

PATIENT
  Age: 73 Year
  Sex: Female
  Weight: 52.16 kg

DRUGS (3)
  1. LEVOTHYROXINE. [Concomitant]
     Active Substance: LEVOTHYROXINE
  2. AMOXICILLIN 500MG [Suspect]
     Active Substance: AMOXICILLIN
     Indication: IMPLANT SITE INFECTION
     Dosage: ?          QUANTITY:3 DF DOSAGE FORM;?
     Route: 048
     Dates: start: 20200520, end: 20200523
  3. TRIPLE POWER OMEGA 3 FISH OIL [Concomitant]

REACTIONS (6)
  - Nausea [None]
  - Dizziness [None]
  - Vomiting [None]
  - Arrhythmia [None]
  - Heart rate increased [None]
  - Diarrhoea [None]

NARRATIVE: CASE EVENT DATE: 20200523
